FAERS Safety Report 23275858 (Version 6)
Quarter: 2025Q3

REPORT INFORMATION
  Report Type: Spontaneous
  Country: JP (occurrence: JP)
  Receive Date: 20231208
  Receipt Date: 20250803
  Transmission Date: 20251021
  Serious: Yes (Hospitalization, Other)
  Sender: ALEXION PHARMACEUTICALS
  Company Number: 2023A275666

PATIENT
  Age: 83 Year
  Sex: Female

DRUGS (9)
  1. DAPAGLIFLOZIN [Suspect]
     Active Substance: DAPAGLIFLOZIN
     Indication: Cardiac failure chronic
     Dosage: 5 MILLIGRAM, QD
     Dates: start: 202305, end: 20231102
  2. INSULIN NOS [Concomitant]
     Active Substance: INSULIN NOS
  3. SPIRONOLACTONE [Concomitant]
     Active Substance: SPIRONOLACTONE
  4. EDOXABAN TOSYLATE [Concomitant]
     Active Substance: EDOXABAN TOSYLATE
  5. IMIDAPRIL HYDROCHLORIDE [Concomitant]
     Active Substance: IMIDAPRIL HYDROCHLORIDE
  6. ROSUVASTATIN [Concomitant]
     Active Substance: ROSUVASTATIN
  7. BISOPROLOL [Concomitant]
     Active Substance: BISOPROLOL
  8. CELECOXIB [Concomitant]
     Active Substance: CELECOXIB
  9. TEPRENONE [Concomitant]
     Active Substance: TEPRENONE

REACTIONS (5)
  - Thoracic vertebral fracture [Recovered/Resolved]
  - Rib fracture [Recovered/Resolved]
  - Euglycaemic diabetic ketoacidosis [Recovered/Resolved]
  - Fall [Unknown]
  - Eating disorder [Recovered/Resolved]

NARRATIVE: CASE EVENT DATE: 20230901
